FAERS Safety Report 10081564 (Version 2)
Quarter: 2014Q3

REPORT INFORMATION
  Report Type: Spontaneous
  Country: IT (occurrence: IT)
  Receive Date: 20140416
  Receipt Date: 20140708
  Transmission Date: 20150326
  Serious: Yes (Hospitalization)
  Sender: FDA-Public Use
  Company Number: IT-SA-2014SA042341

PATIENT
  Age: 13 Year
  Sex: Male
  Weight: 36 kg

DRUGS (5)
  1. LENDORMIN [Suspect]
     Active Substance: BROTIZOLAM
     Indication: SUICIDE ATTEMPT
     Route: 048
     Dates: start: 20140325, end: 20140325
  2. FLUIBRON [Concomitant]
     Active Substance: AMBROXOL HYDROCHLORIDE
     Route: 055
     Dates: start: 20140324, end: 20140325
  3. LASIX [Suspect]
     Active Substance: FUROSEMIDE
     Indication: SUICIDE ATTEMPT
     Route: 048
     Dates: start: 20140325, end: 20140325
  4. TOTALIP [Suspect]
     Active Substance: ATORVASTATIN
     Indication: SUICIDE ATTEMPT
     Route: 048
     Dates: start: 20140325, end: 20140325
  5. MULTIVITAMINS [Concomitant]
     Active Substance: VITAMINS
     Route: 048
     Dates: start: 20140324, end: 20140324

REACTIONS (4)
  - Nausea [Recovered/Resolved]
  - Headache [Recovered/Resolved]
  - Drug abuse [Recovered/Resolved]
  - Suicide attempt [Recovered/Resolved]

NARRATIVE: CASE EVENT DATE: 20140325
